FAERS Safety Report 14648275 (Version 1)
Quarter: 2018Q1

REPORT INFORMATION
  Report Type: Report from Study
  Country: CA (occurrence: CA)
  Receive Date: 20180316
  Receipt Date: 20180316
  Transmission Date: 20180509
  Serious: Yes (Other)
  Sender: FDA-Public Use
  Company Number: CA-JNJFOC-20180238088

PATIENT
  Sex: Male
  Weight: 85.3 kg

DRUGS (2)
  1. REMICADE [Suspect]
     Active Substance: INFLIXIMAB
     Indication: CROHN^S DISEASE
     Route: 042
  2. REMICADE [Suspect]
     Active Substance: INFLIXIMAB
     Indication: CROHN^S DISEASE
     Dosage: NUMBER OF SEPARATE DOSAGES: 8??NUMBER OF UNITS IN THE INTERVAL: 1??DEFINITION OF THE INTERVAL: YEAR
     Route: 042
     Dates: start: 20060531, end: 20180112

REACTIONS (2)
  - Anal cancer [Not Recovered/Not Resolved]
  - Antibiotic therapy [Unknown]
